FAERS Safety Report 4869882-3 (Version None)
Quarter: 2005Q4

REPORT INFORMATION
  Report Type: 
  Country: None (occurrence: None)
  Receive Date: 20051227
  Receipt Date: 20051215
  Transmission Date: 20060501
  Serious: Yes (Other)
  Sender: FDA-Public Use
  Company Number: SUS1-2005-00896

PATIENT
  Sex: Male
  Weight: 41.7 kg

DRUGS (1)
  1. ADDERALL 10 [Suspect]
     Dosage: SEE IMAGE
     Dates: start: 20000101

REACTIONS (4)
  - ABNORMAL BEHAVIOUR [None]
  - NAUSEA [None]
  - SUICIDAL IDEATION [None]
  - SUICIDE ATTEMPT [None]
